FAERS Safety Report 24711078 (Version 1)
Quarter: 2024Q4

REPORT INFORMATION
  Report Type: Spontaneous
  Country: US (occurrence: US)
  Receive Date: 20241209
  Receipt Date: 20241209
  Transmission Date: 20250115
  Serious: No
  Sender: JOHNSON AND JOHNSON
  Company Number: US-JNJFOC-20241140592

PATIENT

DRUGS (1)
  1. TREMFYA [Suspect]
     Active Substance: GUSELKUMAB
     Indication: Product used for unknown indication

REACTIONS (5)
  - Injury associated with device [Unknown]
  - Device leakage [Unknown]
  - Device delivery system issue [Unknown]
  - Scratch [Unknown]
  - Product dose omission issue [Unknown]
